FAERS Safety Report 8495587-6 (Version None)
Quarter: 2012Q3

REPORT INFORMATION
  Report Type: 
  Country: None (occurrence: None)
  Receive Date: 20120709
  Receipt Date: 20120627
  Transmission Date: 20120928
  Serious: Yes (Death, Hospitalization)
  Sender: FDA-Public Use
  Company Number: JP-NAPPMUNDI-MAG-2012-0002178

PATIENT
  Sex: Male
  Weight: 70 kg

DRUGS (16)
  1. LASIX [Concomitant]
     Dosage: 40 MG, DAILY
     Route: 048
  2. EPADEL                             /01682401/ [Concomitant]
     Dosage: 2 DF, DAILY
     Route: 048
  3. LIVALO [Concomitant]
     Dosage: 1 MG, DAILY
     Route: 048
  4. PURSENNID                          /00142207/ [Concomitant]
     Dosage: 12 MG, DAILY
     Route: 048
  5. DENSHICHI GINSENG [Concomitant]
  6. ALLOPURINOL [Concomitant]
     Dosage: 200 MG, DAILY
     Route: 048
  7. PLAVIX [Concomitant]
  8. LANSOPRAZOLE [Concomitant]
     Dosage: 15 MG, DAILY
     Route: 048
  9. CELEBREX [Concomitant]
     Dosage: 200 MG, DAILY
     Route: 048
  10. AGARICUS [Concomitant]
  11. CARVEDILOL [Concomitant]
     Dosage: 20 MG, DAILY
     Route: 048
  12. BUPRENORPHINE [Suspect]
     Indication: PAIN
     Dosage: 5 MCG, Q1H
     Route: 062
     Dates: start: 20120514, end: 20120516
  13. ZETIA [Concomitant]
     Dosage: 10 MG, DAILY
     Route: 048
  14. SAN'O-SHASHIN-TO [Concomitant]
     Dosage: 5 G, DAILY
     Route: 048
  15. EPINASTINE HYDROCHLORIDE [Concomitant]
     Dosage: 20 MG, DAILY
     Route: 048
  16. WARFARIN SODIUM [Concomitant]
     Dosage: 2.5 MG, DAILY
     Route: 048

REACTIONS (3)
  - INTERSTITIAL LUNG DISEASE [None]
  - VOMITING [None]
  - NAUSEA [None]
